FAERS Safety Report 23223908 (Version 2)
Quarter: 2023Q4

REPORT INFORMATION
  Report Type: Spontaneous
  Country: US (occurrence: US)
  Receive Date: 20231124
  Receipt Date: 20231212
  Transmission Date: 20240109
  Serious: No
  Sender: FDA-Public Use
  Company Number: US-SANOFI-01844999

PATIENT
  Age: 61 Year
  Sex: Male
  Weight: 232.8 kg

DRUGS (11)
  1. DUPIXENT [Suspect]
     Active Substance: DUPILUMAB
     Indication: Asthma
     Dosage: 300 MG QOW
  2. ALBUTEROL SULFATE [Concomitant]
     Active Substance: ALBUTEROL SULFATE
     Indication: Asthma
     Dosage: UNK, INHALE 2 PUFFS EVERY 4 HOURS AS NEEDED
     Route: 055
     Dates: start: 20220806
  3. DEXLANSOPRAZOLE [Concomitant]
     Active Substance: DEXLANSOPRAZOLE
     Indication: Asthma
     Dosage: 1 DF, QD, BIPHASE DELAYED RELEASE
     Route: 048
     Dates: start: 20230803
  4. EPINEPHRINE [Concomitant]
     Active Substance: EPINEPHRINE
     Indication: Hypersensitivity
     Dosage: UNK, 0.3MG/0.3ML , AUTO INJECTOR
     Dates: start: 20230705
  5. EPINEPHRINE [Concomitant]
     Active Substance: EPINEPHRINE
     Indication: Asthma
  6. ERGOCALCIFEROL [Concomitant]
     Active Substance: ERGOCALCIFEROL
     Indication: Asthma
     Dosage: 1 DF, BIW (50,000 UNIT)
     Route: 048
     Dates: start: 20230831
  7. ALBUTEROL\IPRATROPIUM [Concomitant]
     Active Substance: ALBUTEROL\IPRATROPIUM
     Indication: Asthma
     Dosage: UNK, 1 VIAL IN NEBULISER EVERY 6 HOURS AS NEEDED (3MG/3ML)
     Dates: start: 20230803
  8. MONTELUKAST [Concomitant]
     Active Substance: MONTELUKAST SODIUM
     Indication: Rhinitis allergic
     Dosage: 1 DF, QD
     Route: 048
     Dates: start: 20220722
  9. SIMVASTATIN [Concomitant]
     Active Substance: SIMVASTATIN
     Indication: Asthma
     Dosage: 1 DF, QD IN THE EVENING
     Route: 048
     Dates: start: 20210621
  10. TRELEGY ELLIPTA [Concomitant]
     Active Substance: FLUTICASONE FUROATE\UMECLIDINIUM BROMIDE\VILANTEROL TRIFENATATE
     Indication: Asthma
     Dosage: UNK, INHALE 1 PUFF ONCE DAILY AS DIRECTED
     Route: 055
     Dates: start: 20230829
  11. ZYRTEC [Concomitant]
     Active Substance: CETIRIZINE HYDROCHLORIDE
     Indication: Rhinitis allergic
     Dosage: UNK

REACTIONS (3)
  - Chest discomfort [Unknown]
  - Dyspnoea [Unknown]
  - Rash [Recovered/Resolved]
